FAERS Safety Report 12588539 (Version 1)
Quarter: 2016Q3

REPORT INFORMATION
  Report Type: Spontaneous
  Country: US (occurrence: US)
  Receive Date: 20160725
  Receipt Date: 20160725
  Transmission Date: 20161109
  Serious: No
  Sender: FDA-Public Use
  Company Number: US-JNJFOC-20160701433

PATIENT

DRUGS (2)
  1. TYLENOL [Suspect]
     Active Substance: ACETAMINOPHEN
     Indication: PRODUCT USED FOR UNKNOWN INDICATION
     Route: 055
  2. TYLENOL [Suspect]
     Active Substance: ACETAMINOPHEN
     Route: 055

REACTIONS (3)
  - Intentional product misuse [Unknown]
  - Epistaxis [Unknown]
  - Headache [Unknown]
